FAERS Safety Report 6818998-0 (Version None)
Quarter: 2010Q3

REPORT INFORMATION
  Report Type: 
  Country: None (occurrence: None)
  Receive Date: 20100701
  Receipt Date: 20100628
  Transmission Date: 20110219
  Serious: Yes (Other)
  Sender: FDA-Public Use
  Company Number: 2010SP036091

PATIENT
  Age: 79 Year
  Sex: Female

DRUGS (2)
  1. REMERON [Suspect]
     Dosage: ; PO
     Route: 048
     Dates: start: 20100513
  2. TOLEDOMIN [Concomitant]

REACTIONS (1)
  - INAPPROPRIATE ANTIDIURETIC HORMONE SECRETION [None]
